FAERS Safety Report 13576253 (Version 1)
Quarter: 2017Q2

REPORT INFORMATION
  Report Type: Spontaneous
  Country: US (occurrence: US)
  Receive Date: 20170524
  Receipt Date: 20170524
  Transmission Date: 20170830
  Serious: No
  Sender: FDA-Public Use
  Company Number: US-CELGENEUS-USA-20170503355

PATIENT
  Sex: Female

DRUGS (1)
  1. OTEZLA [Suspect]
     Active Substance: APREMILAST
     Indication: PSORIASIS
     Dosage: 60 MILLIGRAM
     Route: 048
     Dates: start: 2016

REACTIONS (5)
  - Muscular weakness [Recovering/Resolving]
  - Paraesthesia [Unknown]
  - Back disorder [Unknown]
  - Hypoaesthesia [Unknown]
  - Neuralgia [Unknown]

NARRATIVE: CASE EVENT DATE: 2016
